FAERS Safety Report 13330872 (Version 1)
Quarter: 2017Q1

REPORT INFORMATION
  Report Type: Spontaneous
  Country: JP (occurrence: JP)
  Receive Date: 20170313
  Receipt Date: 20170313
  Transmission Date: 20170428
  Serious: Yes (Other)
  Sender: FDA-Public Use
  Company Number: JP-EISAI MEDICAL RESEARCH-EC-2017-024541

PATIENT
  Age: 9 Year
  Sex: Male

DRUGS (7)
  1. FYCOMPA [Suspect]
     Active Substance: PERAMPANEL
     Route: 048
     Dates: start: 20161202
  2. FYCOMPA [Suspect]
     Active Substance: PERAMPANEL
     Indication: EPILEPSY
     Route: 048
     Dates: start: 20160929, end: 20161010
  3. FYCOMPA [Suspect]
     Active Substance: PERAMPANEL
     Route: 048
     Dates: start: 20161115, end: 20161128
  4. FYCOMPA [Suspect]
     Active Substance: PERAMPANEL
     Route: 048
     Dates: start: 20161101, end: 20161114
  5. GABAPEN [Concomitant]
     Active Substance: GABAPENTIN
     Indication: EPILEPSY
     Route: 048
  6. FYCOMPA [Suspect]
     Active Substance: PERAMPANEL
     Route: 048
     Dates: start: 20161018, end: 20161031
  7. FYCOMPA [Suspect]
     Active Substance: PERAMPANEL
     Route: 048
     Dates: start: 20161011, end: 20161017

REACTIONS (2)
  - Drug administered to patient of inappropriate age [Recovered/Resolved]
  - Seizure cluster [Recovered/Resolved]

NARRATIVE: CASE EVENT DATE: 20161116
